FAERS Safety Report 9603239 (Version 1)
Quarter: 2013Q4

REPORT INFORMATION
  Report Type: Spontaneous
  Country: US (occurrence: US)
  Receive Date: 20131007
  Receipt Date: 20131007
  Transmission Date: 20140711
  Serious: Yes (Death, Hospitalization, Other)
  Sender: FDA-Public Use
  Company Number: US-BAXTER-2013BAX038383

PATIENT
  Age: 62 Year
  Sex: Male
  Weight: 79.54 kg

DRUGS (5)
  1. GAMMAGARD LIQUID [Suspect]
     Indication: IMMUNODEFICIENCY
     Route: 042
     Dates: start: 20130225, end: 20130826
  2. GAMMAGARD LIQUID [Suspect]
     Indication: NON-HODGKIN^S LYMPHOMA
  3. GAMMAGARD LIQUID [Suspect]
     Indication: ANAEMIA
  4. GAMMAGARD LIQUID [Suspect]
     Indication: HYPOGLOBULINAEMIA
  5. REVLIMID [Concomitant]
     Indication: CHEMOTHERAPY
     Route: 048
     Dates: start: 20130917

REACTIONS (3)
  - Death [Fatal]
  - Lactic acidosis [Unknown]
  - Infection [Unknown]
